FAERS Safety Report 11506359 (Version 1)
Quarter: 2015Q3

REPORT INFORMATION
  Report Type: Spontaneous
  Country: US (occurrence: US)
  Receive Date: 20150915
  Receipt Date: 20150915
  Transmission Date: 20151125
  Serious: No
  Sender: FDA-Public Use
  Company Number: US-ROCHE-760059

PATIENT
  Age: 40 Year
  Sex: Male

DRUGS (1)
  1. PEGASYS [Suspect]
     Active Substance: PEGINTERFERON ALFA-2A
     Indication: PRODUCT USED FOR UNKNOWN INDICATION
     Route: 065

REACTIONS (7)
  - Heart rate increased [Unknown]
  - Ocular discomfort [Unknown]
  - Insomnia [Unknown]
  - Back pain [Unknown]
  - Dysuria [Unknown]
  - Headache [Unknown]
  - Blood pressure increased [Unknown]
